FAERS Safety Report 13460062 (Version 1)
Quarter: 2017Q2

REPORT INFORMATION
  Report Type: Spontaneous
  Country: US (occurrence: US)
  Receive Date: 20170420
  Receipt Date: 20170420
  Transmission Date: 20170830
  Serious: No
  Sender: FDA-Public Use
  Company Number: US-TEVA-757678ACC

PATIENT
  Sex: Male
  Weight: 74.84 kg

DRUGS (1)
  1. AMBIEN [Suspect]
     Active Substance: ZOLPIDEM TARTRATE
     Indication: INSOMNIA
     Dosage: TAKES THIS OCCASIONALLY, VERY VERY INFREQUENTLY IF HE HAS A HARD TIME SLEEPING

REACTIONS (1)
  - Drug ineffective [Unknown]
